FAERS Safety Report 18208537 (Version 1)
Quarter: 2020Q3

REPORT INFORMATION
  Report Type: Spontaneous
  Country: JP (occurrence: JP)
  Receive Date: 20200828
  Receipt Date: 20200828
  Transmission Date: 20201103
  Serious: Yes (Other)
  Sender: FDA-Public Use
  Company Number: JP-ASTRAZENECA-2020SE42685

PATIENT
  Age: 25185 Day
  Sex: Female
  Weight: 50 kg

DRUGS (12)
  1. LOTRIGA [Concomitant]
     Active Substance: OMEGA-3-ACID ETHYL ESTERS
     Indication: HYPERLIPIDAEMIA
     Route: 048
     Dates: start: 20200326
  2. MONTELUKAST [Concomitant]
     Active Substance: MONTELUKAST SODIUM
     Dosage: DOSE UNKNOWN
     Route: 065
  3. RUPAFIN [Concomitant]
     Active Substance: RUPATADINE FUMARATE
     Dosage: DOSE UNKNOWN
     Route: 065
  4. METHYCOBAL [Concomitant]
     Active Substance: METHYLCOBALAMIN
     Dosage: DOSE UNKNOWN
     Route: 065
  5. ISOBIDE [Concomitant]
     Active Substance: ISOSORBIDE
     Dosage: DOSE UNKNOWN
     Route: 048
  6. CRESTOR OD [Suspect]
     Active Substance: ROSUVASTATIN CALCIUM
     Indication: HYPERCHOLESTEROLAEMIA
     Route: 048
     Dates: start: 20200110, end: 20200217
  7. FLUMETHOLON [Concomitant]
     Active Substance: FLUOROMETHOLONE
     Dosage: DOSE UNKNOWN
     Route: 047
  8. ZEPELIN [Concomitant]
     Dosage: DOSE UNKNOWN
     Route: 047
  9. MOMETASONE FUROATE. [Concomitant]
     Active Substance: MOMETASONE FUROATE
     Dosage: DOSE UNKNOWN
     Route: 045
  10. SIMVASTATIN. [Concomitant]
     Active Substance: SIMVASTATIN
     Indication: HYPERCHOLESTEROLAEMIA
     Route: 048
     Dates: start: 20190527
  11. ACUATIM [Concomitant]
     Active Substance: NADIFLOXACIN
     Dosage: DOSE UNKNOWN
     Route: 062
  12. ADETPHOS [Concomitant]
     Active Substance: ADENOSINE TRIPHOSPHATE
     Dosage: DOSE UNKNOWN
     Route: 048

REACTIONS (3)
  - Off label use [Unknown]
  - Deafness [Recovered/Resolved]
  - Headache [Recovered/Resolved]

NARRATIVE: CASE EVENT DATE: 20200111
